FAERS Safety Report 5296641-2 (Version None)
Quarter: 2007Q2

REPORT INFORMATION
  Report Type: 
  Country: None (occurrence: None)
  Receive Date: 20070413
  Receipt Date: 20070406
  Transmission Date: 20071010
  Serious: Yes (Hospitalization, Other)
  Sender: FDA-Public Use
  Company Number: JP-PFIZER INC-2007010759

PATIENT
  Sex: Female

DRUGS (5)
  1. ZOLOFT [Suspect]
     Indication: DEPRESSION
     Dosage: DAILY DOSE:100MG
     Route: 048
  2. RIVOTRIL [Concomitant]
     Indication: DEPRESSION
     Route: 048
     Dates: start: 20070207
  3. CONSTAN [Concomitant]
     Route: 048
  4. SULPIRIDE [Concomitant]
     Route: 048
  5. LOXONIN [Concomitant]
     Route: 048

REACTIONS (7)
  - ANXIETY [None]
  - DEPRESSED LEVEL OF CONSCIOUSNESS [None]
  - FLASHBACK [None]
  - IMPULSIVE BEHAVIOUR [None]
  - INTENTIONAL OVERDOSE [None]
  - SELF INJURIOUS BEHAVIOUR [None]
  - SUICIDE ATTEMPT [None]
